FAERS Safety Report 10090684 (Version 2)
Quarter: 2014Q2

REPORT INFORMATION
  Report Type: Spontaneous
  Country: FR (occurrence: FR)
  Receive Date: 20140421
  Receipt Date: 20140513
  Transmission Date: 20141212
  Serious: Yes (Hospitalization, Other)
  Sender: FDA-Public Use
  Company Number: FR-ABBVIE-14P-056-1226771-00

PATIENT
  Age: 33 Year
  Sex: Male
  Weight: 60 kg

DRUGS (4)
  1. HUMIRA [Suspect]
     Indication: CROHN^S DISEASE
     Dosage: 160 MG
     Route: 058
     Dates: start: 20140303, end: 20140303
  2. HUMIRA [Suspect]
     Dosage: 80 MG
     Route: 058
     Dates: start: 20140317, end: 20140317
  3. HUMIRA [Suspect]
     Dosage: 40 MG
     Route: 058
     Dates: start: 20140331, end: 20140331
  4. IMUREL [Concomitant]
     Indication: CROHN^S DISEASE
     Route: 048
     Dates: start: 20140217

REACTIONS (1)
  - Arterial thrombosis [Recovering/Resolving]
